FAERS Safety Report 4267158-9 (Version None)
Quarter: 2004Q1

REPORT INFORMATION
  Report Type: 
  Country: None (occurrence: None)
  Receive Date: 20040107
  Receipt Date: 20031208
  Transmission Date: 20041129
  Serious: Yes (Other)
  Sender: FDA-Public Use
  Company Number: BLOC000746

PATIENT
  Age: 6 Year
  Sex: Male

DRUGS (1)
  1. MYOBLOC [Suspect]
     Indication: MUSCLE SPASTICITY
     Dosage: 20,000 U INTRAMUSCULAR
     Route: 030
     Dates: start: 20031101, end: 20031101

REACTIONS (6)
  - DRY MOUTH [None]
  - DYSPHAGIA [None]
  - DYSPNOEA [None]
  - LETHARGY [None]
  - OVERDOSE [None]
  - PHARYNGITIS STREPTOCOCCAL [None]
